FAERS Safety Report 21130910 (Version 1)
Quarter: 2022Q3

REPORT INFORMATION
  Report Type: Spontaneous
  Country: US (occurrence: US)
  Receive Date: 20220726
  Receipt Date: 20220726
  Transmission Date: 20221027
  Serious: Yes (Other)
  Sender: FDA-Public Use
  Company Number: US-SA-SAC20220721002236

PATIENT
  Age: 65 Year
  Sex: Male

DRUGS (1)
  1. ZANTAC [Suspect]
     Active Substance: RANITIDINE HYDROCHLORIDE
     Indication: Dyspepsia
     Dosage: UNK (DOSE: UNKNOWN AT THIS TIME, FREQUENCY: OTHER)
     Dates: start: 199501, end: 200012

REACTIONS (1)
  - Colorectal cancer stage II [Recovered/Resolved]

NARRATIVE: CASE EVENT DATE: 20150209
